FAERS Safety Report 4769812-9 (Version None)
Quarter: 2005Q3

REPORT INFORMATION
  Report Type: 
  Country: None (occurrence: None)
  Receive Date: 20050912
  Receipt Date: 20050620
  Transmission Date: 20060218
  Serious: Yes (Death, Hospitalization)
  Sender: FDA-Public Use
  Company Number: 2005-01315

PATIENT
  Age: 50 Year
  Sex: Male
  Weight: 77.9 kg

DRUGS (2)
  1. VELCADE [Suspect]
     Indication: MULTIPLE MYELOMA
     Dosage: 1.30 MG/M2, 2/WEEK, INTRAVENOUS
     Route: 042
     Dates: start: 20050516
  2. SCIO-469 [Suspect]
     Indication: MULTIPLE MYELOMA
     Dosage: 60.00 MG, TID, ORAL; 1.30 MG/M2M 2/WEEK, INTRAVENOUS
     Route: 042
     Dates: start: 20050426, end: 20050530

REACTIONS (5)
  - BLOOD CALCIUM INCREASED [None]
  - BLOOD CREATININE INCREASED [None]
  - CONFUSIONAL STATE [None]
  - DISEASE PROGRESSION [None]
  - PYREXIA [None]
